FAERS Safety Report 4509092-2 (Version None)
Quarter: 2004Q4

REPORT INFORMATION
  Report Type: 
  Country: None (occurrence: None)
  Receive Date: 20041025
  Receipt Date: 20040723
  Transmission Date: 20050328
  Serious: Yes (Other)
  Sender: FDA-Public Use
  Company Number: US-JNJFOC-20040706468

PATIENT
  Age: 60 Year
  Sex: Male
  Weight: 115.2136 kg

DRUGS (5)
  1. INFLIXIMAB (INFLIXIMAB, RECOMBINANT) LYOPHILIZED POWDER [Suspect]
     Indication: RHEUMATOID ARTHRITIS
     Dosage: EVERY 8 WEEKS
     Dates: start: 20021119
  2. METHOTREXATE [Concomitant]
  3. DICLOFENAC (DICLOFENAC [Concomitant]
  4. FOLIC ACID [Concomitant]
  5. PRINZIDE [Concomitant]

REACTIONS (3)
  - BACK PAIN [None]
  - CHEST DISCOMFORT [None]
  - DIZZINESS [None]
